FAERS Safety Report 9668255 (Version 2)
Quarter: 2013Q4

REPORT INFORMATION
  Report Type: Spontaneous
  Country: US (occurrence: US)
  Receive Date: 20131104
  Receipt Date: 20131104
  Transmission Date: 20140711
  Serious: Yes (Hospitalization)
  Sender: FDA-Public Use
  Company Number: US-B.I. PHARMACEUTICALS,INC./RIDGEFIELD-2013-BI-13304BP

PATIENT
  Sex: Male
  Weight: 88.45 kg

DRUGS (15)
  1. PRADAXA [Suspect]
     Indication: ANTICOAGULANT THERAPY
     Dosage: 300 MG
     Route: 048
     Dates: start: 20110726, end: 20111021
  2. PRADAXA [Suspect]
     Indication: ATRIAL FIBRILLATION
  3. ASPIRIN [Concomitant]
     Dosage: 81 MG
     Route: 048
  4. ISOSORBIDE MONONITRATE [Concomitant]
     Indication: HYPERTENSION
     Dosage: 120 MG
     Route: 048
  5. EYE DROPS [Concomitant]
     Route: 031
  6. METROGEL [Concomitant]
     Route: 061
  7. FLONASE [Concomitant]
     Route: 045
  8. ZINC OXIDE [Concomitant]
  9. FLUOCINONIDE [Concomitant]
     Route: 061
  10. TRIAMCINOLONE [Concomitant]
     Route: 061
  11. ATENOLOL [Concomitant]
     Indication: HYPERTENSION
     Dosage: 50 MG
     Route: 048
  12. NITROGLYCERIN [Concomitant]
     Indication: CHEST PAIN
     Route: 060
  13. GLUCOSAMINE CHONDROITIN [Concomitant]
     Route: 048
  14. OMEPRAZOLE [Concomitant]
  15. SIMVASTATIN [Concomitant]
     Indication: DYSLIPIDAEMIA
     Dosage: 40 MG
     Route: 048

REACTIONS (5)
  - Subdural haematoma [Unknown]
  - Cerebellar haematoma [Unknown]
  - Haemorrhagic stroke [Unknown]
  - Cerebral haemorrhage [Unknown]
  - Contusion [Unknown]
